FAERS Safety Report 22240074 (Version 2)
Quarter: 2023Q2

REPORT INFORMATION
  Report Type: Report from Study
  Country: US (occurrence: US)
  Receive Date: 20230421
  Receipt Date: 20230616
  Transmission Date: 20230721
  Serious: No
  Sender: FDA-Public Use
  Company Number: US-ALLERGAN-2305854US

PATIENT
  Sex: Female
  Weight: 65.77 kg

DRUGS (2)
  1. RESTASIS [Suspect]
     Active Substance: CYCLOSPORINE
     Indication: Product used for unknown indication
     Route: 047
  2. RESTASIS [Suspect]
     Active Substance: CYCLOSPORINE
     Dosage: STILL USING, ?EXP DATE: OCT-2024
     Route: 047
     Dates: start: 20230217

REACTIONS (2)
  - Eye irritation [Unknown]
  - Product quality issue [Unknown]
